FAERS Safety Report 12899429 (Version 1)
Quarter: 2016Q4

REPORT INFORMATION
  Report Type: Spontaneous
  Country: US (occurrence: US)
  Receive Date: 20161101
  Receipt Date: 20161101
  Transmission Date: 20170207
  Serious: No
  Sender: FDA-Public Use
  Company Number: US-ABBVIE-15P-163-1524387-00

PATIENT

DRUGS (2)
  1. BIAXIN [Suspect]
     Active Substance: CLARITHROMYCIN
     Indication: BRONCHITIS
     Route: 048
  2. BIAXIN [Suspect]
     Active Substance: CLARITHROMYCIN
     Indication: SINUSITIS

REACTIONS (2)
  - Diarrhoea [Unknown]
  - Dysgeusia [Unknown]
